FAERS Safety Report 14113374 (Version 1)
Quarter: 2017Q4

REPORT INFORMATION
  Report Type: Spontaneous
  Country: US (occurrence: None)
  Receive Date: 20171021
  Receipt Date: 20171021
  Transmission Date: 20180321
  Serious: Yes (Other)
  Sender: FDA-Public Use
  Company Number: None

PATIENT
  Age: 29 Year
  Sex: Female
  Weight: 64.41 kg

DRUGS (4)
  1. BIRTH CONTROL [Concomitant]
     Active Substance: UNSPECIFIED INGREDIENT
  2. XOLAIR [Suspect]
     Active Substance: OMALIZUMAB
  3. PROBIOTICS [Concomitant]
     Active Substance: PROBIOTICS NOS
  4. MULTIVITAMIN [Concomitant]
     Active Substance: VITAMINS

REACTIONS (1)
  - Swelling face [None]

NARRATIVE: CASE EVENT DATE: 20171020
